FAERS Safety Report 9109046 (Version 1)
Quarter: 2013Q1

REPORT INFORMATION
  Report Type: Report from Study
  Country: US (occurrence: US)
  Receive Date: 20130222
  Receipt Date: 20130222
  Transmission Date: 20140127
  Serious: Yes (Hospitalization, Other)
  Sender: FDA-Public Use
  Company Number: US-BIOMARINAP-US-2013-100268

PATIENT
  Age: 28 None
  Sex: Female
  Weight: 79.37 kg

DRUGS (11)
  1. KUVAN [Suspect]
     Indication: PHENYLKETONURIA
     Dosage: 1000 MG, QD
     Route: 048
     Dates: start: 20070718
  2. OMEPRAZOLE [Concomitant]
     Indication: IRRITABLE BOWEL SYNDROME
     Dosage: 20.6 MG, QD
     Dates: start: 2011
  3. CLARITIN                           /00917501/ [Concomitant]
     Indication: SEASONAL ALLERGY
     Dosage: 10 MG, QD
     Route: 048
     Dates: start: 201208
  4. PRENATAL VITAMINS                  /01549301/ [Concomitant]
     Indication: PREGNANCY
     Route: 048
  5. CALCIUM [Concomitant]
     Indication: MEDICAL DIET
     Dosage: 600 MG, UNK
     Route: 048
     Dates: start: 20090520
  6. PEPTO BISMOL                       /00139305/ [Concomitant]
     Indication: IRRITABLE BOWEL SYNDROME
     Dosage: UNK, PRN
     Route: 048
  7. PITOCIN                            /00071301/ [Concomitant]
     Indication: LABOUR INDUCTION
     Dosage: UNK
     Route: 042
     Dates: start: 20130118, end: 20130119
  8. MOTRIN [Concomitant]
     Indication: PAIN
     Dosage: 600 MG, PRN
     Route: 048
     Dates: start: 20130119, end: 20130121
  9. VICODIN [Concomitant]
     Indication: PAIN
     Dosage: UNK
     Route: 048
     Dates: start: 20130119, end: 20130120
  10. COLACE [Concomitant]
     Indication: CONSTIPATION
     Dosage: 100 MG, PRN
     Route: 048
     Dates: start: 20130119
  11. MILK OF MAGNESIA [Concomitant]
     Indication: CONSTIPATION
     Dosage: 30 ML, PRN
     Route: 048
     Dates: start: 20130119, end: 20130119

REACTIONS (2)
  - HELLP syndrome [Recovered/Resolved]
  - Exposure during pregnancy [Recovered/Resolved]
